FAERS Safety Report 15225380 (Version 1)
Quarter: 2018Q3

REPORT INFORMATION
  Report Type: Spontaneous
  Country: GB (occurrence: GB)
  Receive Date: 20180801
  Receipt Date: 20180801
  Transmission Date: 20181010
  Serious: Yes (Hospitalization)
  Sender: FDA-Public Use
  Company Number: GB-JNJFOC-20180729940

PATIENT
  Age: 15 Year
  Sex: Male

DRUGS (2)
  1. PARACETAMOL [Suspect]
     Active Substance: ACETAMINOPHEN
     Route: 065
  2. PARACETAMOL [Suspect]
     Active Substance: ACETAMINOPHEN
     Indication: OVERDOSE
     Dosage: 16 TAKEN IN TOTAL
     Route: 065
     Dates: start: 20180702, end: 20180702

REACTIONS (2)
  - Malaise [Recovered/Resolved]
  - Overdose [Recovered/Resolved]
